FAERS Safety Report 25611926 (Version 1)
Quarter: 2025Q3

REPORT INFORMATION
  Report Type: Spontaneous
  Country: GB (occurrence: GB)
  Receive Date: 20250728
  Receipt Date: 20250728
  Transmission Date: 20251021
  Serious: Yes (Other)
  Sender: AUROBINDO
  Company Number: GB-MHRA-MED-202507161641437610-JTFZB

PATIENT
  Age: 78 Year
  Sex: Female

DRUGS (2)
  1. ACETAMINOPHEN [Suspect]
     Active Substance: ACETAMINOPHEN
     Indication: Rheumatoid arthritis
     Dosage: 162 MILLIGRAM, EVERY WEEK (162MG ONCE A WEEK)
     Route: 065
  2. COCODAMOL [Concomitant]
     Active Substance: ACETAMINOPHEN\CODEINE PHOSPHATE
     Indication: Product used for unknown indication
     Route: 065

REACTIONS (3)
  - Diplopia [Unknown]
  - Dizziness [Unknown]
  - Illness [Unknown]

NARRATIVE: CASE EVENT DATE: 20250715
